FAERS Safety Report 9501428 (Version 1)
Quarter: 2013Q3

REPORT INFORMATION
  Report Type: Spontaneous
  Country: US (occurrence: US)
  Receive Date: 20130905
  Receipt Date: 20130905
  Transmission Date: 20140515
  Serious: Yes (Other)
  Sender: FDA-Public Use
  Company Number: US-GLAXOSMITHKLINE-A1040085A

PATIENT
  Sex: Female

DRUGS (13)
  1. ADVAIR [Suspect]
     Indication: CHRONIC OBSTRUCTIVE PULMONARY DISEASE
     Dosage: 1PUFF TWICE PER DAY
     Route: 055
     Dates: start: 201304
  2. GABAPENTIN [Concomitant]
  3. LOVASTATIN [Concomitant]
  4. METOPROLOL [Concomitant]
  5. SPIRONOLACTONE [Concomitant]
  6. BABY ASPIRIN [Concomitant]
  7. SPIRIVA [Concomitant]
  8. XOPENEX [Concomitant]
  9. CLARITIN [Concomitant]
  10. MIRALAX [Concomitant]
  11. ACIPHEX [Concomitant]
  12. RANITIDINE [Concomitant]
  13. LISTERINE [Concomitant]

REACTIONS (4)
  - Aphagia [Recovered/Resolved]
  - Oral candidiasis [Recovered/Resolved]
  - Dysphagia [Recovered/Resolved]
  - Off label use [Not Recovered/Not Resolved]
